FAERS Safety Report 8381785-9 (Version None)
Quarter: 2012Q2

REPORT INFORMATION
  Report Type: 
  Country: None (occurrence: None)
  Receive Date: 20120427
  Receipt Date: 20120418
  Transmission Date: 20120825
  Serious: Yes (Other)
  Sender: FDA-Public Use
  Company Number: AECAN201200212

PATIENT
  Age: 59 Year
  Sex: Male

DRUGS (2)
  1. IGIVNEX [Suspect]
     Indication: THROMBOCYTOPENIA
     Dosage: 37.2 GM;TOTAL;IV
     Route: 042
     Dates: start: 20120325, end: 20120325
  2. IGIVNEX [Suspect]

REACTIONS (10)
  - ALANINE AMINOTRANSFERASE INCREASED [None]
  - CHILLS [None]
  - BLOOD LACTATE DEHYDROGENASE INCREASED [None]
  - HYPERTENSION [None]
  - VOMITING [None]
  - HAEMOGLOBIN DECREASED [None]
  - HAEMATURIA [None]
  - HEADACHE [None]
  - NAUSEA [None]
  - DELAYED HAEMOLYTIC TRANSFUSION REACTION [None]
